FAERS Safety Report 9733304 (Version 5)
Quarter: 2015Q2

REPORT INFORMATION
  Report Type: Spontaneous
  Country: US (occurrence: US)
  Receive Date: 20131205
  Receipt Date: 20150608
  Transmission Date: 20150821
  Serious: Yes (Hospitalization, Other)
  Sender: FDA-Public Use
  Company Number: US-BAYER-2013-144934

PATIENT
  Age: 34 Year
  Sex: Female

DRUGS (4)
  1. NORCO [Concomitant]
     Active Substance: ACETAMINOPHEN\HYDROCODONE BITARTRATE
     Indication: PAIN
     Dosage: EVERY 4 HOURS AS NEEDED
     Route: 048
  2. DIFLUCAN [Concomitant]
     Active Substance: FLUCONAZOLE
  3. MIRENA [Suspect]
     Active Substance: LEVONORGESTREL
     Indication: CONTRACEPTION
     Dosage: 20 MCG/24HR, CONT
     Route: 015
     Dates: start: 200908, end: 20121210
  4. NORCO [Concomitant]
     Active Substance: ACETAMINOPHEN\HYDROCODONE BITARTRATE
     Indication: PAIN
     Dosage: 5 MG, EVERY 6-8 HOURS
     Route: 048

REACTIONS (11)
  - Vaginal haemorrhage [None]
  - Embedded device [None]
  - Injury [None]
  - Infertility female [None]
  - Ovarian cyst [None]
  - Thrombophlebitis [None]
  - Device difficult to use [None]
  - Post procedural haemorrhage [None]
  - Pelvic haemorrhage [None]
  - Abdominal pain [None]
  - Emotional distress [None]

NARRATIVE: CASE EVENT DATE: 201209
